FAERS Safety Report 12049947 (Version 1)
Quarter: 2016Q1

REPORT INFORMATION
  Report Type: Report from Study
  Country: US (occurrence: US)
  Receive Date: 20160209
  Receipt Date: 20160209
  Transmission Date: 20160526
  Serious: No
  Sender: FDA-Public Use
  Company Number: US-ABBVIE-15P-163-1427229-00

PATIENT
  Age: 58 Year
  Sex: Female

DRUGS (1)
  1. HUMIRA [Suspect]
     Active Substance: ADALIMUMAB
     Indication: RHEUMATOID ARTHRITIS
     Dosage: ONE PEN
     Route: 065
     Dates: start: 20150624

REACTIONS (2)
  - Onychomycosis [Not Recovered/Not Resolved]
  - Nail discolouration [Not Recovered/Not Resolved]

NARRATIVE: CASE EVENT DATE: 20150710
